FAERS Safety Report 24812198 (Version 1)
Quarter: 2025Q1

REPORT INFORMATION
  Report Type: Spontaneous
  Country: US (occurrence: None)
  Receive Date: 20250106
  Receipt Date: 20250106
  Transmission Date: 20250409
  Serious: Yes (Disabling)
  Sender: FDA-CTU
  Company Number: None

PATIENT
  Age: 30 Year
  Sex: Female
  Weight: 65.25 kg

DRUGS (15)
  1. VYEPTI [Suspect]
     Active Substance: EPTINEZUMAB-JJMR
     Indication: Migraine
  2. Alpha stim [Concomitant]
  3. BACLOFEN [Concomitant]
     Active Substance: BACLOFEN
  4. EFFEXOR [Concomitant]
     Active Substance: VENLAFAXINE HYDROCHLORIDE
  5. LAMOTRIGINE [Concomitant]
     Active Substance: LAMOTRIGINE
  6. PROPRANOLOL [Concomitant]
     Active Substance: PROPRANOLOL HYDROCHLORIDE
  7. VITAMIN D2 [Concomitant]
     Active Substance: ERGOCALCIFEROL
  8. ZOFRAN [Concomitant]
     Active Substance: ONDANSETRON HYDROCHLORIDE
  9. rizitriptian [Concomitant]
  10. BOTOX [Concomitant]
     Active Substance: ONABOTULINUMTOXINA
  11. NEXPLANON [Concomitant]
     Active Substance: ETONOGESTREL
  12. oral birth control [Concomitant]
  13. klopoin [Concomitant]
  14. FIBER THERAPY (CALCIUM POLYCARBOPHIL) [Concomitant]
     Active Substance: CALCIUM POLYCARBOPHIL
  15. PROBIOTICS NOS [Concomitant]
     Active Substance: PROBIOTICS NOS

REACTIONS (30)
  - Hot flush [None]
  - Temperature intolerance [None]
  - Hyperhidrosis [None]
  - Dyspnoea [None]
  - Heart rate increased [None]
  - Heart rate decreased [None]
  - Hypertension [None]
  - Dizziness [None]
  - Dizziness [None]
  - Paraesthesia [None]
  - Hypoaesthesia [None]
  - Hyperaesthesia [None]
  - Swelling [None]
  - Pharyngeal swelling [None]
  - Sinus congestion [None]
  - Constipation [None]
  - Brain fog [None]
  - Confusional state [None]
  - Disorganised speech [None]
  - Balance disorder [None]
  - Memory impairment [None]
  - Dysphagia [None]
  - Fatigue [None]
  - Muscular weakness [None]
  - Dry eye [None]
  - Eye pruritus [None]
  - Abdominal pain [None]
  - Arthralgia [None]
  - Irritability [None]
  - Chest discomfort [None]

NARRATIVE: CASE EVENT DATE: 20241123
